FAERS Safety Report 8730406 (Version 2)
Quarter: 2012Q4

REPORT INFORMATION
  Report Type: Report from Study
  Country: JP (occurrence: JP)
  Receive Date: 20120817
  Receipt Date: 20120919
  Transmission Date: 20130627
  Serious: Yes (Hospitalization)
  Sender: FDA-Public Use
  Company Number: JP-ROCHE-1100063

PATIENT
  Age: 72 Year
  Sex: Female
  Weight: 51 kg

DRUGS (7)
  1. ROACTEMRA [Suspect]
     Indication: RHEUMATOID ARTHRITIS
     Route: 041
     Dates: start: 20090707, end: 20120804
  2. ROACTEMRA [Suspect]
     Indication: RHEUMATOID ARTHRITIS
     Route: 041
     Dates: start: 20090901, end: 20091027
  3. ROACTEMRA [Suspect]
     Indication: RHEUMATOID ARTHRITIS
     Route: 041
     Dates: start: 20091124, end: 20100608
  4. ROACTEMRA [Suspect]
     Indication: RHEUMATOID ARTHRITIS
     Route: 041
     Dates: start: 20100706, end: 20100706
  5. ROACTEMRA [Suspect]
     Indication: RHEUMATOID ARTHRITIS
     Route: 041
     Dates: start: 20100803, end: 20101026
  6. ROACTEMRA [Suspect]
     Indication: RHEUMATOID ARTHRITIS
     Route: 041
     Dates: start: 20101221
  7. PROGRAF [Concomitant]
     Route: 048
     Dates: end: 20091124

REACTIONS (4)
  - Cholangitis suppurative [Recovered/Resolved]
  - Septic shock [Recovered/Resolved]
  - Stress cardiomyopathy [Recovered/Resolved]
  - Cholelithiasis [Unknown]
